FAERS Safety Report 8101174-1 (Version None)
Quarter: 2012Q1

REPORT INFORMATION
  Report Type: 
  Country: None (occurrence: None)
  Receive Date: 20120129
  Receipt Date: 20111019
  Transmission Date: 20120608
  Serious: No
  Sender: FDA-Public Use
  Company Number: US-ABBOTT-11P-163-0863950-00

PATIENT
  Sex: Male
  Weight: 74.91 kg

DRUGS (7)
  1. FLOMAX [Concomitant]
     Indication: PRODUCT USED FOR UNKNOWN INDICATION
  2. HUMIRA [Suspect]
     Dosage: 1 PEN WEEK 2
     Route: 058
  3. HUMIRA [Suspect]
     Indication: PSORIASIS
     Dosage: 2 PENS WEEK 1
     Route: 058
     Dates: start: 20110901
  4. HUMIRA [Suspect]
     Route: 058
  5. HUMIRA [Suspect]
     Dates: start: 20111010, end: 20111010
  6. EPIVIR [Concomitant]
     Indication: PRODUCT USED FOR UNKNOWN INDICATION
  7. PROSCAR [Concomitant]
     Indication: PRODUCT USED FOR UNKNOWN INDICATION

REACTIONS (7)
  - ABDOMINAL PAIN UPPER [None]
  - BLOOD CREATININE INCREASED [None]
  - DIARRHOEA [None]
  - BLOOD GLUCOSE INCREASED [None]
  - FLATULENCE [None]
  - ABDOMINAL DISCOMFORT [None]
  - RENAL IMPAIRMENT [None]
